FAERS Safety Report 9553548 (Version 1)
Quarter: 2013Q3

REPORT INFORMATION
  Report Type: Spontaneous
  Country: US (occurrence: None)
  Receive Date: 20130924
  Receipt Date: 20130924
  Transmission Date: 20140515
  Serious: Yes (Disabling)
  Sender: FDA-Public Use
  Company Number: None

PATIENT
  Age: 49 Year
  Sex: Female
  Weight: 56.7 kg

DRUGS (1)
  1. PRISTIQ [Suspect]
     Indication: ANXIETY
     Dosage: 50 MG ONCE DAILY TAKEN BY MOUTH
     Route: 048

REACTIONS (7)
  - Dizziness [None]
  - Headache [None]
  - Paraesthesia [None]
  - Nausea [None]
  - Impaired work ability [None]
  - Impaired driving ability [None]
  - Drug half-life reduced [None]
